FAERS Safety Report 5054210-3 (Version None)
Quarter: 2006Q3

REPORT INFORMATION
  Report Type: 
  Country: None (occurrence: None)
  Receive Date: 20060713
  Receipt Date: 20060616
  Transmission Date: 20061208
  Serious: Yes (Hospitalization)
  Sender: FDA-Public Use
  Company Number: 2006PV017061

PATIENT
  Sex: Female

DRUGS (1)
  1. EXENATIDE (EXENATIDE) [Suspect]
     Indication: DIABETES MELLITUS
     Dosage: 10 UG; BID; SC
     Route: 058

REACTIONS (1)
  - ANAEMIA [None]
